FAERS Safety Report 25618712 (Version 1)
Quarter: 2025Q3

REPORT INFORMATION
  Report Type: Spontaneous
  Country: US (occurrence: US)
  Receive Date: 20250729
  Receipt Date: 20250729
  Transmission Date: 20251021
  Serious: No
  Sender: ABBVIE
  Company Number: US-ABBVIE-6387909

PATIENT
  Age: 45 Year
  Sex: Male

DRUGS (3)
  1. VRAYLAR [Suspect]
     Active Substance: CARIPRAZINE
     Indication: Bipolar disorder
     Dosage: DOSE INCREASED?FORM STRENGTH: 3 MILLIGRAM
     Route: 048
  2. VRAYLAR [Suspect]
     Active Substance: CARIPRAZINE
     Indication: Bipolar disorder
     Dosage: FORM STRENGTH: 1.5 MILLIGRAM?4 WEEKS
     Route: 048
  3. VRAYLAR [Suspect]
     Active Substance: CARIPRAZINE
     Indication: Bipolar disorder
     Dosage: FORM STRENGTH: 1.5 MILLIGRAM
     Route: 048

REACTIONS (2)
  - Brain fog [Recovered/Resolved]
  - Arthralgia [Recovered/Resolved]
